FAERS Safety Report 4653304-1 (Version None)
Quarter: 2005Q2

REPORT INFORMATION
  Report Type: 
  Country: None (occurrence: None)
  Receive Date: 20050503
  Receipt Date: 20050503
  Transmission Date: 20051028
  Serious: No
  Sender: FDA-Public Use
  Company Number: None

PATIENT
  Age: 63 Year
  Sex: Female
  Weight: 58.9676 kg

DRUGS (1)
  1. PREDNISONE [Suspect]

REACTIONS (5)
  - HYPERSENSITIVITY [None]
  - MEDICATION ERROR [None]
  - PAIN [None]
  - RASH GENERALISED [None]
  - RENAL PAIN [None]
